FAERS Safety Report 25406686 (Version 2)
Quarter: 2025Q2

REPORT INFORMATION
  Report Type: Spontaneous
  Country: GB (occurrence: GB)
  Receive Date: 20250606
  Receipt Date: 20250609
  Transmission Date: 20250717
  Serious: Yes (Other)
  Sender: TEVA
  Company Number: None

PATIENT
  Age: 47 Year
  Sex: Male

DRUGS (7)
  1. LEVOTHYROXINE [Suspect]
     Active Substance: LEVOTHYROXINE
     Indication: Hypothyroidism
     Route: 048
     Dates: start: 20091228, end: 2022
  2. LEVOTHYROXINE [Suspect]
     Active Substance: LEVOTHYROXINE
     Indication: Hypothyroidism
     Route: 048
     Dates: start: 2022, end: 202412
  3. LEVOTHYROXINE [Suspect]
     Active Substance: LEVOTHYROXINE
     Indication: Hypothyroidism
     Route: 048
     Dates: start: 202501
  4. RAMIPRIL [Concomitant]
     Active Substance: RAMIPRIL
     Indication: Blood pressure increased
     Dates: start: 20220304, end: 20241206
  5. CANDESARTAN [Concomitant]
     Active Substance: CANDESARTAN
     Indication: Hypertension
     Dates: start: 20250105
  6. VITAMINS [Concomitant]
     Active Substance: VITAMINS
     Indication: Routine health maintenance
     Dates: start: 20100913, end: 20210406
  7. CHOLECALCIFEROL [Concomitant]
     Active Substance: CHOLECALCIFEROL
     Indication: Vitamin D deficiency
     Dates: start: 20120712

REACTIONS (17)
  - Back pain [Not Recovered/Not Resolved]
  - Brain fog [Not Recovered/Not Resolved]
  - Medication error [Unknown]
  - Headache [Not Recovered/Not Resolved]
  - Bone pain [Not Recovered/Not Resolved]
  - Arthralgia [Not Recovered/Not Resolved]
  - Spinal pain [Not Recovered/Not Resolved]
  - Arthralgia [Not Recovered/Not Resolved]
  - Rash [Not Recovered/Not Resolved]
  - Dizziness [Not Recovered/Not Resolved]
  - Muscle spasms [Not Recovered/Not Resolved]
  - Joint noise [Not Recovered/Not Resolved]
  - Dry skin [Not Recovered/Not Resolved]
  - Hyperhidrosis [Not Recovered/Not Resolved]
  - Myalgia [Not Recovered/Not Resolved]
  - Arthralgia [Not Recovered/Not Resolved]
  - Tremor [Not Recovered/Not Resolved]

NARRATIVE: CASE EVENT DATE: 20150510
